FAERS Safety Report 19056705 (Version 2)
Quarter: 2021Q1

REPORT INFORMATION
  Report Type: Spontaneous
  Country: JP (occurrence: JP)
  Receive Date: 20210325
  Receipt Date: 20210325
  Transmission Date: 20210420
  Serious: Yes (Hospitalization)
  Sender: FDA-Public Use
  Company Number: JP-PFM-2021-01978

PATIENT
  Age: 1 Month
  Sex: Female

DRUGS (5)
  1. HEMANGIOL [Suspect]
     Active Substance: PROPRANOLOL HYDROCHLORIDE
     Dosage: 3 MG/KG/DAY
     Route: 048
     Dates: start: 20210209, end: 20210214
  2. HEMANGIOL [Suspect]
     Active Substance: PROPRANOLOL HYDROCHLORIDE
     Dosage: 2 MG/KG
     Route: 048
     Dates: start: 20210215
  3. HEMANGIOL [Suspect]
     Active Substance: PROPRANOLOL HYDROCHLORIDE
     Dosage: 2 MG/KG/DAY
     Route: 048
     Dates: start: 20210207, end: 20210208
  4. INCREMIN [FERRIC PYROPHOSPHATE] [Suspect]
     Active Substance: FERRIC PYROPHOSPHATE
     Indication: ANAEMIA
     Dosage: 2ML
     Route: 048
     Dates: start: 20210204, end: 20210215
  5. HEMANGIOL [Suspect]
     Active Substance: PROPRANOLOL HYDROCHLORIDE
     Indication: INFANTILE HAEMANGIOMA
     Dosage: 1 MG/KG,/DAY
     Route: 048
     Dates: start: 20210204, end: 20210206

REACTIONS (1)
  - Hepatic function abnormal [Recovering/Resolving]

NARRATIVE: CASE EVENT DATE: 20210212
